FAERS Safety Report 11024302 (Version 1)
Quarter: 2015Q2

REPORT INFORMATION
  Report Type: Report from Study
  Country: DE (occurrence: DE)
  Receive Date: 20150414
  Receipt Date: 20150414
  Transmission Date: 20150821
  Serious: Yes (Hospitalization)
  Sender: FDA-Public Use
  Company Number: DE-ROCHE-1561708

PATIENT
  Age: 59 Year
  Sex: Female
  Weight: 47 kg

DRUGS (5)
  1. BEVACIZUMAB [Suspect]
     Active Substance: BEVACIZUMAB
     Indication: BREAST CANCER
     Route: 042
     Dates: start: 20141210, end: 20141210
  2. BEVACIZUMAB [Suspect]
     Active Substance: BEVACIZUMAB
     Route: 042
     Dates: start: 20150120, end: 20150120
  3. NOVALGIN [Concomitant]
     Active Substance: METAMIZOLE SODIUM
     Route: 048
     Dates: start: 20150128
  4. PACLITAXEL ALBUMIN [Suspect]
     Active Substance: PACLITAXEL
     Indication: BREAST CANCER
     Route: 042
     Dates: start: 20141125
  5. PACLITAXEL ALBUMIN [Suspect]
     Active Substance: PACLITAXEL
     Route: 042
     Dates: start: 20150113

REACTIONS (1)
  - Haematuria [Not Recovered/Not Resolved]

NARRATIVE: CASE EVENT DATE: 20150327
